FAERS Safety Report 12403935 (Version 2)
Quarter: 2016Q2

REPORT INFORMATION
  Report Type: Spontaneous
  Country: US (occurrence: US)
  Receive Date: 20160525
  Receipt Date: 20160525
  Transmission Date: 20160815
  Serious: Yes (Hospitalization, Other)
  Sender: FDA-Public Use
  Company Number: US-MYLANLABS-2016M1020042

PATIENT

DRUGS (11)
  1. METOPROLOL. [Suspect]
     Active Substance: METOPROLOL
     Dosage: UNK
  2. LISINOPRIL MYLAN [Suspect]
     Active Substance: LISINOPRIL
     Dosage: UNK, QD
  3. FOLIC ACID. [Concomitant]
     Active Substance: FOLIC ACID
     Dosage: UNK
  4. METOPROLOL. [Suspect]
     Active Substance: METOPROLOL
     Dosage: UNK
  5. METOPROLOL. [Suspect]
     Active Substance: METOPROLOL
     Dosage: UNK
  6. ALLOPURINOL. [Concomitant]
     Active Substance: ALLOPURINOL
     Dosage: 150 MG, UNK
  7. ASPIRIN                            /00002701/ [Concomitant]
     Active Substance: ASPIRIN
     Dosage: UNK
  8. DILTIAZEM MYLAN [Suspect]
     Active Substance: DILTIAZEM
     Dosage: UNK
  9. DIETARY SUPPLEMENT [Suspect]
     Active Substance: DIETARY SUPPLEMENT
     Dosage: UNK UNK, QD
     Route: 048
     Dates: start: 2010, end: 201510
  10. SPIRONOLACTONE. [Suspect]
     Active Substance: SPIRONOLACTONE
     Dosage: UNK, QD
  11. COLCRYS [Concomitant]
     Active Substance: COLCHICINE
     Dosage: UNK

REACTIONS (38)
  - Upper limb fracture [Unknown]
  - Deafness [Unknown]
  - Fatigue [Unknown]
  - Coordination abnormal [Unknown]
  - Fall [Unknown]
  - Sleep disorder [Unknown]
  - Body height decreased [Unknown]
  - Cardiomyopathy [Unknown]
  - Diplopia [Unknown]
  - Gynaecomastia [Unknown]
  - Rotator cuff syndrome [Unknown]
  - Skin wrinkling [Unknown]
  - Dyspnoea [Unknown]
  - Restless legs syndrome [Unknown]
  - Nephropathy [Unknown]
  - Weight increased [Unknown]
  - Pulmonary oedema [Unknown]
  - Neuropathy peripheral [Unknown]
  - Device malfunction [Unknown]
  - Sensory loss [Unknown]
  - Cardiac failure congestive [Unknown]
  - Cardiomegaly [Unknown]
  - Tendon rupture [Unknown]
  - Peripheral coldness [Unknown]
  - Hypervitaminosis [Unknown]
  - Pain [Unknown]
  - Sensory loss [Unknown]
  - Tendon disorder [Unknown]
  - Fine motor skill dysfunction [Unknown]
  - Tooth disorder [Unknown]
  - Atypical pneumonia [Unknown]
  - Lyme disease [Unknown]
  - Muscle atrophy [Unknown]
  - Unevaluable event [Unknown]
  - Muscular weakness [Unknown]
  - Temperature regulation disorder [Unknown]
  - Hypertension [Unknown]
  - Feeling hot [None]

NARRATIVE: CASE EVENT DATE: 20110226
